FAERS Safety Report 17302397 (Version 1)
Quarter: 2020Q1

REPORT INFORMATION
  Report Type: Spontaneous
  Country: US (occurrence: US)
  Receive Date: 20200122
  Receipt Date: 20200122
  Transmission Date: 20200409
  Serious: No
  Sender: FDA-Public Use
  Company Number: US-GALDERMA-US19023152

PATIENT
  Sex: Female

DRUGS (2)
  1. SULFA CLEANSER [Concomitant]
  2. EPIDUO [Suspect]
     Active Substance: ADAPALENE\BENZOYL PEROXIDE
     Indication: PRODUCT USED FOR UNKNOWN INDICATION
     Dosage: 0.1%/2.5%
     Route: 061

REACTIONS (2)
  - Application site pain [Unknown]
  - Application site rash [Unknown]
